FAERS Safety Report 10004774 (Version 1)
Quarter: 2014Q1

REPORT INFORMATION
  Report Type: Spontaneous
  Country: FR (occurrence: FR)
  Receive Date: 20140312
  Receipt Date: 20140312
  Transmission Date: 20141002
  Serious: Yes (Hospitalization)
  Sender: FDA-Public Use
  Company Number: FR-GLAXOSMITHKLINE-B0974293A

PATIENT
  Age: 74 Year
  Sex: Male

DRUGS (3)
  1. ARIXTRA [Suspect]
     Indication: DEEP VEIN THROMBOSIS
     Dosage: 7.5MG PER DAY
     Route: 058
     Dates: start: 20140124, end: 20140205
  2. ARIXTRA [Concomitant]
     Indication: THROMBOPHLEBITIS SUPERFICIAL
     Dosage: 2.5MG PER DAY
     Route: 065
  3. ICAZ [Concomitant]
     Indication: HYPERTENSION
     Dosage: 5MG PER DAY
     Route: 048

REACTIONS (4)
  - Toxic skin eruption [Recovering/Resolving]
  - Rash macular [Recovering/Resolving]
  - Hepatocellular injury [Recovering/Resolving]
  - Cholestasis [Recovering/Resolving]
